FAERS Safety Report 24029301 (Version 1)
Quarter: 2024Q2

REPORT INFORMATION
  Report Type: Spontaneous
  Country: IT (occurrence: IT)
  Receive Date: 20240628
  Receipt Date: 20240628
  Transmission Date: 20240715
  Serious: Yes (Hospitalization)
  Sender: FDA-Public Use
  Company Number: IT-MYLANLABS-2024M1058077

PATIENT
  Age: 33 Year
  Sex: Female

DRUGS (1)
  1. XANAX [Suspect]
     Active Substance: ALPRAZOLAM
     Indication: Tachycardia
     Dosage: .25, ONCE
     Route: 065

REACTIONS (8)
  - Retching [Unknown]
  - Hyperhidrosis [Unknown]
  - Hypotension [Not Recovered/Not Resolved]
  - Blood creatinine decreased [Unknown]
  - Intentional product misuse [Unknown]
  - Burning sensation [Recovering/Resolving]
  - Nausea [Recovering/Resolving]
  - Tremor [Recovering/Resolving]
